FAERS Safety Report 6058467-1 (Version None)
Quarter: 2009Q1

REPORT INFORMATION
  Report Type: 
  Country: None (occurrence: None)
  Receive Date: 20090128
  Receipt Date: 20090128
  Transmission Date: 20090719
  Serious: Yes (Hospitalization)
  Sender: FDA-Public Use
  Company Number: None

PATIENT
  Age: 20 Year
  Sex: Male
  Weight: 85 kg

DRUGS (2)
  1. ZOLPIDEM [Suspect]
     Indication: SLEEP DISORDER
     Dosage: 4 TAB ONCE PO
     Route: 048
     Dates: start: 20090122, end: 20090123
  2. DEXTROMETHORPHAN [Suspect]
     Indication: UPPER RESPIRATORY TRACT INFECTION
     Dosage: 180 MG ONCE PO
     Route: 048
     Dates: start: 20090123, end: 20090123

REACTIONS (10)
  - ALANINE AMINOTRANSFERASE INCREASED [None]
  - ASPARTATE AMINOTRANSFERASE INCREASED [None]
  - BLOOD CREATINE PHOSPHOKINASE INCREASED [None]
  - BLOOD PRESSURE INCREASED [None]
  - CONFUSIONAL STATE [None]
  - DRUG SCREEN POSITIVE [None]
  - HEART RATE INCREASED [None]
  - RESPIRATORY RATE INCREASED [None]
  - SEDATION [None]
  - SOMNOLENCE [None]
